FAERS Safety Report 24800154 (Version 2)
Quarter: 2025Q1

REPORT INFORMATION
  Report Type: Report from Study
  Country: HN (occurrence: HN)
  Receive Date: 20250102
  Receipt Date: 20250110
  Transmission Date: 20250409
  Serious: Yes (Disabling)
  Sender: NOVARTIS
  Company Number: HN-002147023-NVSC2024HN247008

PATIENT
  Age: 41 Year
  Sex: Male
  Weight: 62.1 kg

DRUGS (2)
  1. EXFORGE [Suspect]
     Active Substance: AMLODIPINE BESYLATE\VALSARTAN
     Indication: Hypertension
     Dosage: 10/320 MG, QD
     Route: 048
     Dates: start: 202006, end: 202406
  2. EXFORGE [Suspect]
     Active Substance: AMLODIPINE BESYLATE\VALSARTAN
     Dosage: 5/320MG, QD
     Route: 048
     Dates: start: 202406

REACTIONS (1)
  - Hypotension [Recovering/Resolving]

NARRATIVE: CASE EVENT DATE: 20240601
